FAERS Safety Report 9213529 (Version 1)
Quarter: 2013Q2

REPORT INFORMATION
  Report Type: Spontaneous
  Country: US (occurrence: None)
  Receive Date: 20130405
  Receipt Date: 20130405
  Transmission Date: 20140414
  Serious: Yes (Hospitalization)
  Sender: FDA-Public Use
  Company Number: None

PATIENT
  Age: 82 Year
  Sex: Male
  Weight: 76.5 kg

DRUGS (1)
  1. WARFARIN [Suspect]
     Dosage: MG   PO?~07/18/2012
     Route: 048
     Dates: start: 20120718

REACTIONS (4)
  - Epistaxis [None]
  - Chest pain [None]
  - Haemoglobin decreased [None]
  - Haemorrhage [None]
